FAERS Safety Report 24628082 (Version 1)
Quarter: 2024Q4

REPORT INFORMATION
  Report Type: Spontaneous
  Country: US (occurrence: US)
  Receive Date: 20241117
  Receipt Date: 20241117
  Transmission Date: 20250114
  Serious: Yes (Other)
  Sender: SANOFI AVENTIS
  Company Number: US-SANOFI-02299004

PATIENT
  Age: 69 Year
  Sex: Male

DRUGS (2)
  1. TOUJEO [Suspect]
     Active Substance: INSULIN GLARGINE
     Indication: Diabetes mellitus
     Dosage: 75 IU, QD
     Route: 065
     Dates: end: 2024
  2. TOUJEO [Suspect]
     Active Substance: INSULIN GLARGINE
     Dosage: 75 IU, QD
     Route: 065
     Dates: start: 2024

REACTIONS (1)
  - Blindness unilateral [Unknown]
